FAERS Safety Report 11529450 (Version 1)
Quarter: 2015Q3

REPORT INFORMATION
  Report Type: Spontaneous
  Country: US (occurrence: None)
  Receive Date: 20150918
  Receipt Date: 20150918
  Transmission Date: 20151125
  Serious: Yes (Other)
  Sender: FDA-Public Use
  Company Number: None

PATIENT
  Sex: Female

DRUGS (1)
  1. DOXYCYCLINE HYCLATE 100MG TABLETS [Suspect]
     Active Substance: DOXYCYCLINE HYCLATE
     Indication: SINUSITIS

REACTIONS (7)
  - Myalgia [None]
  - Dyspnoea [None]
  - Back pain [None]
  - Drug dispensing error [None]
  - Mobility decreased [None]
  - Gait disturbance [None]
  - Pain in extremity [None]
